FAERS Safety Report 18301892 (Version 5)
Quarter: 2020Q4

REPORT INFORMATION
  Report Type: Spontaneous
  Country: FR (occurrence: FR)
  Receive Date: 20200923
  Receipt Date: 20201110
  Transmission Date: 20210113
  Serious: Yes (Other)
  Sender: FDA-Public Use
  Company Number: FR-PFIZER INC-2020362574

PATIENT
  Age: 13 Year
  Sex: Male
  Weight: 51 kg

DRUGS (3)
  1. GABAPENTINE PFIZER [Suspect]
     Active Substance: GABAPENTIN
     Indication: ACCIDENT
     Dosage: UNK
     Dates: start: 20200718, end: 2020
  2. GABAPENTINE PFIZER [Suspect]
     Active Substance: GABAPENTIN
     Indication: NECK CRUSHING
     Dosage: 500 MG, 3X/DAY (STRENGTH: 300MG AND STENGTH: 100MG)
     Dates: start: 2020, end: 2020
  3. GABAPENTINE PFIZER [Suspect]
     Active Substance: GABAPENTIN
     Dosage: 500 MG, 3X/DAY (STRENGTH: 300MG AND STENGTH: 100MG)
     Dates: start: 2020

REACTIONS (12)
  - Nausea [Recovered/Resolved]
  - Speech disorder [Recovered/Resolved]
  - Pain [Recovered/Resolved]
  - Blood bilirubin unconjugated increased [Recovered/Resolved]
  - Fatigue [Recovered/Resolved]
  - Product complaint [Recovering/Resolving]
  - Blood creatinine increased [Recovered/Resolved]
  - Sedation [Recovered/Resolved]
  - Decreased appetite [Recovered/Resolved]
  - Bilirubin conjugated increased [Recovered/Resolved]
  - Blood bilirubin increased [Recovered/Resolved]
  - Confusional state [Recovered/Resolved]

NARRATIVE: CASE EVENT DATE: 2020
